FAERS Safety Report 19804680 (Version 1)
Quarter: 2021Q3

REPORT INFORMATION
  Report Type: Spontaneous
  Country: US (occurrence: US)
  Receive Date: 20210908
  Receipt Date: 20210908
  Transmission Date: 20211014
  Serious: No
  Sender: FDA-Public Use
  Company Number: US-APOTEX-2021AP042433

PATIENT
  Age: 67 Year
  Sex: Male

DRUGS (1)
  1. BUTORPHANOL [Suspect]
     Active Substance: BUTORPHANOL
     Indication: CHOLESTATIC PRURITUS
     Dosage: 1 MG/DAY TO 3 MG/DAY (EQUIVALENT TO 1 PUFF TO 3 PUFFS PER DAY)
     Route: 045
     Dates: start: 201711

REACTIONS (4)
  - Nausea [Unknown]
  - Sedation [Unknown]
  - Off label use [Unknown]
  - Vomiting [Unknown]
